FAERS Safety Report 25616772 (Version 4)
Quarter: 2025Q3

REPORT INFORMATION
  Report Type: Report from Study
  Country: AU (occurrence: AU)
  Receive Date: 20250729
  Receipt Date: 20250904
  Transmission Date: 20251020
  Serious: Yes (Other)
  Sender: NOVARTIS
  Company Number: AU-002147023-NVSC2025AU116575

PATIENT
  Age: 9 Year
  Sex: Male
  Weight: 24.1 kg

DRUGS (3)
  1. KYMRIAH [Suspect]
     Active Substance: TISAGENLECLEUCEL
     Indication: Acute lymphocytic leukaemia
     Route: 042
     Dates: start: 20250312, end: 20250312
  2. KYMRIAH [Suspect]
     Active Substance: TISAGENLECLEUCEL
     Indication: B-cell type acute leukaemia
     Route: 042
     Dates: start: 20250317, end: 20250317
  3. KYMRIAH [Suspect]
     Active Substance: TISAGENLECLEUCEL
     Route: 042
     Dates: start: 20250818, end: 20250818

REACTIONS (2)
  - Acute lymphocytic leukaemia recurrent [Unknown]
  - Loss of CAR T-cell persistence [Unknown]

NARRATIVE: CASE EVENT DATE: 20250708
